FAERS Safety Report 25931133 (Version 1)
Quarter: 2025Q4

REPORT INFORMATION
  Report Type: Spontaneous
  Country: US (occurrence: None)
  Receive Date: 20251016
  Receipt Date: 20251016
  Transmission Date: 20260118
  Serious: No
  Sender: FDA-CTU
  Company Number: None

PATIENT
  Sex: Female

DRUGS (2)
  1. HUMIRA [Suspect]
     Active Substance: ADALIMUMAB
     Indication: Crohn^s disease
     Dosage: 40 MG QOW SUBCUTANEOUS
     Route: 058
     Dates: start: 20250723
  2. HUMIRA PEN CD/UC/HS STRT (ABB) [Concomitant]

REACTIONS (3)
  - Diarrhoea [None]
  - Migraine [None]
  - Therapy change [None]
